FAERS Safety Report 11152848 (Version 1)
Quarter: 2015Q2

REPORT INFORMATION
  Report Type: Spontaneous
  Country: AU (occurrence: AU)
  Receive Date: 20150601
  Receipt Date: 20150601
  Transmission Date: 20150821
  Serious: Yes (Other)
  Sender: FDA-Public Use
  Company Number: AU-MYLANLABS-2015M1017990

PATIENT

DRUGS (4)
  1. CICLOSPORIN [Suspect]
     Active Substance: CYCLOSPORINE
     Indication: DERMATITIS
     Dosage: FOR 1 WEEK
     Route: 048
  2. PREDNISOLONE. [Suspect]
     Active Substance: PREDNISOLONE
     Indication: DERMATITIS
     Dosage: 20-25MG DAILY INTERMITTENTLY FOR 24 MONTHS
     Route: 048
  3. AZATHIOPRINE. [Suspect]
     Active Substance: AZATHIOPRINE
     Indication: DERMATITIS
     Dosage: 25MG DAILY FOR 3 DAYS
     Route: 048
  4. METHOTREXATE [Suspect]
     Active Substance: METHOTREXATE
     Indication: DERMATITIS
     Dosage: 10MG WEEKLY FOR 2 WEEKS
     Route: 048

REACTIONS (2)
  - Cushing^s syndrome [Unknown]
  - Gastrointestinal disorder [Unknown]
